FAERS Safety Report 10586710 (Version 1)
Quarter: 2014Q4

REPORT INFORMATION
  Report Type: Spontaneous
  Country: US (occurrence: None)
  Receive Date: 20141114
  Receipt Date: 20141114
  Transmission Date: 20150529
  Serious: Yes (Life-Threatening, Hospitalization)
  Sender: FDA-Public Use
  Company Number: None

PATIENT
  Age: 55 Year
  Sex: Male

DRUGS (1)
  1. VANCOMYCIN [Suspect]
     Active Substance: VANCOMYCIN
     Route: 042
     Dates: start: 20141013, end: 20141020

REACTIONS (11)
  - Pyrexia [None]
  - Nausea [None]
  - Myalgia [None]
  - Toxicity to various agents [None]
  - Dialysis [None]
  - Inappropriate schedule of drug administration [None]
  - Drug prescribing error [None]
  - Antibiotic level above therapeutic [None]
  - Renal tubular necrosis [None]
  - Acute kidney injury [None]
  - Headache [None]

NARRATIVE: CASE EVENT DATE: 20141020
